FAERS Safety Report 8115289-5 (Version None)
Quarter: 2012Q1

REPORT INFORMATION
  Report Type: 
  Country: None (occurrence: None)
  Receive Date: 20120201
  Receipt Date: 20120117
  Transmission Date: 20120608
  Serious: Yes (Hospitalization)
  Sender: FDA-Public Use
  Company Number: 2011SGN00131

PATIENT
  Age: 44 Year
  Sex: Male
  Weight: 91.2 kg

DRUGS (15)
  1. ULTRAM [Concomitant]
  2. NEULASTA [Concomitant]
  3. DACARBAZINE [Suspect]
     Indication: HODGKIN'S DISEASE
     Dosage: 375 MG/M2, Q14D, INTRAVENOUS
     Route: 042
     Dates: start: 20110210, end: 20110630
  4. ALLOPURINOL [Concomitant]
  5. DOXORUBICIN HCL [Suspect]
     Indication: HODGKIN'S DISEASE
     Dosage: 25 MG/M2, Q14D, INTRAVENOUS
     Route: 042
     Dates: start: 20110210, end: 20110630
  6. PEPCID [Concomitant]
  7. PHENERGAN [Concomitant]
  8. LYRICA [Concomitant]
  9. SGN-35 (CAC10-VCMMAE) INJECTION (BRENTUXIMAB VEDOTIN) [Suspect]
     Indication: HODGKIN'S DISEASE
     Dosage: 0.9 MG/KG, QCYCLE, INTRAVENOUS
     Route: 042
     Dates: start: 20110210, end: 20110630
  10. ZOFRAN [Concomitant]
  11. ATIVAN [Concomitant]
  12. BLEOMYCIN SULFATE [Suspect]
     Indication: HODGKIN'S DISEASE
     Dosage: 10 UNITS/M2, Q14D, INTRAVENOUS
     Route: 042
     Dates: start: 20110210, end: 20110630
  13. VINBLASTINE SULFATE [Suspect]
     Indication: HODGKIN'S DISEASE
     Dosage: 6 MG/M2,Q14D, INTRAVENOUS
     Route: 042
     Dates: start: 20110210, end: 20110630
  14. LISINOPRIL [Concomitant]
  15. GRANISETRON (GRANISETRON HYDROCHLORIDE) [Concomitant]

REACTIONS (11)
  - VIRAL INFECTION [None]
  - COUGH [None]
  - PAINFUL RESPIRATION [None]
  - PYREXIA [None]
  - PULMONARY TOXICITY [None]
  - PNEUMONIA [None]
  - CHILLS [None]
  - CLOSTRIDIUM DIFFICILE COLITIS [None]
  - HYPERHIDROSIS [None]
  - HYPOXIA [None]
  - PULMONARY EMBOLISM [None]
